FAERS Safety Report 17901105 (Version 1)
Quarter: 2020Q2

REPORT INFORMATION
  Report Type: Spontaneous
  Country: US (occurrence: US)
  Receive Date: 20200616
  Receipt Date: 20200616
  Transmission Date: 20200714
  Serious: Yes (Hospitalization)
  Sender: FDA-Public Use
  Company Number: None

PATIENT
  Age: 52 Year
  Sex: Female
  Weight: 134.3 kg

DRUGS (1)
  1. TAXOL [Suspect]
     Active Substance: PACLITAXEL
     Dates: end: 20200514

REACTIONS (17)
  - Nausea [None]
  - Abdominal pain [None]
  - Viral infection [None]
  - Tachycardia [None]
  - Rhonchi [None]
  - Fatigue [None]
  - Pneumonia viral [None]
  - Vomiting [None]
  - Tachypnoea [None]
  - Constipation [None]
  - Hypersomnia [None]
  - Pneumonia [None]
  - Tearfulness [None]
  - Dyspnoea [None]
  - Productive cough [None]
  - Speech disorder [None]
  - Rales [None]

NARRATIVE: CASE EVENT DATE: 20200607
